FAERS Safety Report 10728087 (Version 3)
Quarter: 2017Q3

REPORT INFORMATION
  Report Type: Report from Study
  Country: US (occurrence: US)
  Receive Date: 20150121
  Receipt Date: 20170719
  Transmission Date: 20171127
  Serious: Yes (Death, Hospitalization)
  Sender: FDA-Public Use
  Company Number: US-ACTELION-A-US2015-111362

PATIENT
  Age: 89 Year
  Sex: Male
  Weight: 73.47 kg

DRUGS (5)
  1. TRACLEER [Suspect]
     Active Substance: BOSENTAN
     Indication: PULMONARY ARTERIAL HYPERTENSION
     Dosage: 125 MG, BID
     Route: 048
     Dates: start: 2012
  2. LISINOPRIL. [Concomitant]
     Active Substance: LISINOPRIL
     Dosage: 10 MG, QD
     Dates: start: 2012
  3. LASIX [Concomitant]
     Active Substance: FUROSEMIDE
     Dosage: UNK, QD
     Dates: start: 2012
  4. COREG [Concomitant]
     Active Substance: CARVEDILOL
     Dosage: UNK
     Dates: start: 2012
  5. AMIODARONE [Concomitant]
     Active Substance: AMIODARONE
     Dosage: UNK, BID
     Dates: start: 2012

REACTIONS (4)
  - Lung neoplasm malignant [Fatal]
  - Cardiac pacemaker insertion [Unknown]
  - Metastases to central nervous system [Fatal]
  - Pleural effusion [Unknown]

NARRATIVE: CASE EVENT DATE: 2013
